FAERS Safety Report 11428038 (Version 1)
Quarter: 2015Q3

REPORT INFORMATION
  Report Type: Spontaneous
  Country: DK (occurrence: DK)
  Receive Date: 20150828
  Receipt Date: 20150828
  Transmission Date: 20151125
  Serious: Yes (Other)
  Sender: FDA-Public Use
  Company Number: DK-WATSON-2015-17875

PATIENT
  Age: 65 Year
  Sex: Female

DRUGS (10)
  1. AMLODIPINE [Suspect]
     Active Substance: AMLODIPINE BESYLATE
     Indication: HYPERTENSION
     Dosage: UNK
     Route: 048
     Dates: start: 20071023, end: 201405
  2. TERBINAFIN HEXAL [Concomitant]
     Active Substance: TERBINAFINE HYDROCHLORIDE
     Indication: ONYCHOMYCOSIS
     Dosage: UNK
     Route: 065
     Dates: start: 20110812
  3. CENTYL MED KALIUMKLORID [Concomitant]
     Active Substance: BENDROFLUMETHIAZIDE\POTASSIUM CHLORIDE
     Indication: HYPERTENSION
     Dosage: UNK
     Route: 065
     Dates: end: 20140704
  4. METRONIDAZOL                       /00012501/ [Concomitant]
     Active Substance: METRONIDAZOLE
     Indication: SKIN INFECTION
     Dosage: UNK
     Route: 065
  5. SPORANOX [Concomitant]
     Active Substance: ITRACONAZOLE\SODIUM CHLORIDE
     Indication: SKIN INFECTION
     Dosage: UNK
     Route: 065
     Dates: start: 20070821
  6. TERBINAFIN ORIFARM [Concomitant]
     Indication: ONYCHOMYCOSIS
     Dosage: 250 MG, DAILY
     Route: 048
     Dates: start: 20110630, end: 20110811
  7. KLIOGEST [Concomitant]
     Active Substance: ESTROGENS
     Indication: SKIN DISORDER
     Dosage: 1 DF, DAILY
     Route: 048
     Dates: start: 20130305
  8. CORODIL                            /00574902/ [Concomitant]
     Active Substance: DIPYRIDAMOLE
     Indication: HYPERTENSION
     Dosage: 5 MG, DAILY
     Route: 065
     Dates: start: 2007
  9. TETRALYSAL                         /00052901/ [Concomitant]
     Active Substance: LYMECYCLINE
     Indication: SKIN INFECTION
     Dosage: UNK
     Route: 065
  10. TETRACYCLIN [Concomitant]
     Indication: SKIN INFECTION
     Dosage: UNK
     Route: 003
     Dates: start: 20071101

REACTIONS (3)
  - Cutaneous lupus erythematosus [Not Recovered/Not Resolved]
  - Erythema [Unknown]
  - Rash [Unknown]

NARRATIVE: CASE EVENT DATE: 20071101
